FAERS Safety Report 10901681 (Version 1)
Quarter: 2015Q1

REPORT INFORMATION
  Report Type: Spontaneous
  Country: US (occurrence: US)
  Receive Date: 20150310
  Receipt Date: 20150310
  Transmission Date: 20150721
  Serious: No
  Sender: FDA-Public Use
  Company Number: US-TEVA-546474USA

PATIENT
  Age: 32 Year
  Sex: Female
  Weight: 72.64 kg

DRUGS (1)
  1. PARAGARD T 380A [Suspect]
     Active Substance: COPPER
     Indication: CONTRACEPTION
     Route: 015
     Dates: start: 20141219

REACTIONS (6)
  - Pollakiuria [Recovered/Resolved]
  - Urinary tract infection [Recovered/Resolved]
  - Menstruation irregular [Not Recovered/Not Resolved]
  - Dysmenorrhoea [Recovered/Resolved]
  - Menorrhagia [Recovered/Resolved]
  - Dysuria [Recovered/Resolved]

NARRATIVE: CASE EVENT DATE: 20150227
